FAERS Safety Report 5768145-1 (Version None)
Quarter: 2008Q2

REPORT INFORMATION
  Report Type: 
  Country: None (occurrence: None)
  Receive Date: 20080609
  Receipt Date: 20080522
  Transmission Date: 20081010
  Serious: Yes (Hospitalization)
  Sender: FDA-Public Use
  Company Number: JPI-P-003808

PATIENT
  Age: 32 Year
  Sex: Female

DRUGS (4)
  1. LUVOX [Suspect]
     Indication: DEPRESSION
     Dosage: 50 MG, 1 D, ORAL
     Route: 048
     Dates: start: 20080201
  2. PAROXETINE HCL [Suspect]
     Indication: DRUG USE FOR UNKNOWN INDICATION
     Dosage: 10 MG, 1 D, ORAL
     Route: 048
     Dates: start: 20080201
  3. INSULIN GLARGINE (INSULIN GLARGINE) [Concomitant]
  4. INSULIN LISPRO (INSULIN LISPRO) [Concomitant]

REACTIONS (3)
  - ALANINE AMINOTRANSFERASE INCREASED [None]
  - ASPARTATE AMINOTRANSFERASE INCREASED [None]
  - LIVER DISORDER [None]
